FAERS Safety Report 8894849 (Version 1)
Quarter: 2012Q4

REPORT INFORMATION
  Report Type: Report from Study
  Country: US (occurrence: US)
  Receive Date: 20121108
  Receipt Date: 20121108
  Transmission Date: 20130627
  Serious: Yes (Hospitalization)
  Sender: FDA-Public Use
  Company Number: US-NAPPMUNDI-USA-2012-0095318

PATIENT
  Sex: Female

DRUGS (2)
  1. OXYCONTIN (NDA 22-272) [Suspect]
     Indication: ARTHRITIS
     Dosage: 30 mg, 5-6 tablets q 10-12 hours
     Route: 048
  2. OXYCONTIN (NDA 22-272) [Suspect]
     Indication: OSTEOARTHRITIS

REACTIONS (3)
  - Coma [Recovered/Resolved]
  - Cerebrovascular accident [Recovered/Resolved]
  - Intentional drug misuse [Unknown]
